FAERS Safety Report 11879024 (Version 1)
Quarter: 2015Q4

REPORT INFORMATION
  Report Type: Spontaneous
  Country: US (occurrence: US)
  Receive Date: 20151230
  Receipt Date: 20151230
  Transmission Date: 20160305
  Serious: Yes (Death, Hospitalization)
  Sender: FDA-Public Use
  Company Number: US-B.I. PHARMACEUTICALS,INC./RIDGEFIELD-2015-BI-72705BP

PATIENT
  Age: 82 Year
  Sex: Male

DRUGS (1)
  1. TRADJENTA [Suspect]
     Active Substance: LINAGLIPTIN
     Indication: TYPE 2 DIABETES MELLITUS
     Dosage: 5 MG
     Route: 048
     Dates: start: 201410

REACTIONS (8)
  - Muscle spasms [Unknown]
  - Death [Fatal]
  - Spinal cord infection [Unknown]
  - Spinal cord disorder [Unknown]
  - Spinal cord injury [Unknown]
  - Paralysis [Unknown]
  - Pain in extremity [Unknown]
  - Urinary incontinence [Unknown]

NARRATIVE: CASE EVENT DATE: 20150821
